FAERS Safety Report 17421071 (Version 3)
Quarter: 2020Q3

REPORT INFORMATION
  Report Type: Spontaneous
  Country: MY (occurrence: MY)
  Receive Date: 20200214
  Receipt Date: 20200810
  Transmission Date: 20201102
  Serious: Yes (Death)
  Sender: FDA-Public Use
  Company Number: MY-ROCHE-2547998

PATIENT
  Age: 71 Year
  Sex: Female

DRUGS (2)
  1. RITUXIMAB. [Suspect]
     Active Substance: RITUXIMAB
     Indication: DIFFUSE LARGE B-CELL LYMPHOMA
     Dosage: PART OF R?CEOP
     Route: 065
     Dates: start: 201904, end: 201908
  2. RITUXIMAB. [Suspect]
     Active Substance: RITUXIMAB
     Dosage: PART OF R?DHAC
     Route: 065
     Dates: start: 201909, end: 201910

REACTIONS (1)
  - Death [Fatal]
